FAERS Safety Report 7937657-4 (Version None)
Quarter: 2011Q4

REPORT INFORMATION
  Report Type: 
  Country: None (occurrence: None)
  Receive Date: 20111123
  Receipt Date: 20111111
  Transmission Date: 20120403
  Serious: Yes (Hospitalization, Other)
  Sender: FDA-Public Use
  Company Number: PHEH2011US009218

PATIENT
  Sex: Female

DRUGS (6)
  1. ATENOLOL [Concomitant]
  2. CALCIUM CARBONATE [Concomitant]
  3. MAGNESIUM SULFATE [Concomitant]
  4. TEKTURNA [Suspect]
     Indication: BLOOD PRESSURE
     Dosage: 300 MG, DAILY
  5. LANTUS [Concomitant]
     Indication: DIABETES MELLITUS
     Dosage: 1 DF, DAILY
  6. NOVOLIN 70/30 [Concomitant]
     Indication: DIABETES MELLITUS
     Dosage: UNK DF,(70/30)

REACTIONS (2)
  - NASOPHARYNGITIS [None]
  - DIABETES MELLITUS [None]
